FAERS Safety Report 13565578 (Version 1)
Quarter: 2017Q2

REPORT INFORMATION
  Report Type: Spontaneous
  Country: US (occurrence: US)
  Receive Date: 20170519
  Receipt Date: 20170519
  Transmission Date: 20170830
  Serious: No
  Sender: FDA-Public Use
  Company Number: US-PFM-2017-00602

PATIENT
  Age: 2 Year
  Sex: Female
  Weight: 13.6 kg

DRUGS (3)
  1. HEMANGEOL [Suspect]
     Active Substance: PROPRANOLOL HYDROCHLORIDE
     Dosage: 4.9 ML, BID (2/DAY)
     Route: 048
     Dates: start: 20170103
  2. HEMANGEOL [Suspect]
     Active Substance: PROPRANOLOL HYDROCHLORIDE
     Indication: INFANTILE HAEMANGIOMA
     Dosage: UNK
     Route: 048
     Dates: start: 20140707, end: 20160609
  3. HEMANGEOL [Suspect]
     Active Substance: PROPRANOLOL HYDROCHLORIDE
     Dosage: 2.4 ML, BID (2/DAY)
     Route: 048
     Dates: start: 20161213

REACTIONS (3)
  - Incorrect drug administration duration [Unknown]
  - Sleep disorder [Unknown]
  - Off label use [Unknown]
